FAERS Safety Report 12907094 (Version 2)
Quarter: 2017Q1

REPORT INFORMATION
  Report Type: Spontaneous
  Country: JP (occurrence: JP)
  Receive Date: 20161103
  Receipt Date: 20170109
  Transmission Date: 20170428
  Serious: Yes (Hospitalization)
  Sender: FDA-Public Use
  Company Number: JP-PFIZER INC-2016504520

PATIENT
  Age: 43 Year
  Sex: Female
  Weight: 48.9 kg

DRUGS (27)
  1. LORAZEPAM. [Concomitant]
     Active Substance: LORAZEPAM
     Dosage: 0.5 MG, 1X/DAY
     Route: 048
     Dates: start: 20161115
  2. LIXIANA [Concomitant]
     Active Substance: EDOXABAN TOSILATE MONOHYDRATE
     Indication: PULMONARY EMBOLISM
     Dosage: 30 MG, 1X/DAY
     Route: 048
     Dates: start: 20161031
  3. QUETIAPINE. [Concomitant]
     Active Substance: QUETIAPINE
     Dosage: 50 MG, 1X/DAY
     Route: 048
     Dates: start: 20161101
  4. ETIZOLAM [Concomitant]
     Active Substance: ETIZOLAM
     Dosage: 0.5 MG, 1X/DAY
     Route: 048
  5. MAGMITT [Concomitant]
     Active Substance: MAGNESIUM OXIDE
     Dosage: 500 MG, 3X/DAY
     Route: 048
  6. NEXIUM [Concomitant]
     Active Substance: ESOMEPRAZOLE MAGNESIUM
     Dosage: 20 MG, 1X/DAY
     Route: 048
  7. SODIUM VALPROATE [Concomitant]
     Active Substance: VALPROATE SODIUM
     Dosage: 600 MG, 2X/DAY
     Route: 048
     Dates: start: 20161116
  8. AZUNOL #1 [Concomitant]
  9. SODIUM VALPROATE [Concomitant]
     Active Substance: VALPROATE SODIUM
     Dosage: 800 MG, 2X/DAY
     Route: 048
     Dates: start: 20161110, end: 20161115
  10. QUETIAPINE. [Concomitant]
     Active Substance: QUETIAPINE
     Dosage: 25 MG, 1X/DAY
     Route: 048
  11. OLANZAPINE. [Concomitant]
     Active Substance: OLANZAPINE
     Dosage: 10 MG, 1X/DAY
     Route: 048
     Dates: start: 20161030, end: 20161102
  12. BROTIZOLAM [Concomitant]
     Active Substance: BROTIZOLAM
     Dosage: 0.25 MG, AS NEEDED
     Route: 048
     Dates: start: 20161105
  13. MIDAZOLAM [Concomitant]
     Active Substance: MIDAZOLAM HYDROCHLORIDE
     Dosage: 10 MG, SINGLE
     Dates: start: 20161031, end: 20161031
  14. ZYPREXA INTRAMUSCULAR [Concomitant]
     Active Substance: OLANZAPINE
     Dosage: 10 MG, 1X/DAY
     Route: 030
     Dates: start: 20161028, end: 20161030
  15. VINCRISTINE [Concomitant]
     Active Substance: VINCRISTINE
     Indication: LYMPHOMA
     Dosage: UNK
     Dates: start: 201609
  16. LIXIANA [Concomitant]
     Active Substance: EDOXABAN TOSILATE MONOHYDRATE
     Indication: DEEP VEIN THROMBOSIS
  17. MIDAZOLAM [Concomitant]
     Active Substance: MIDAZOLAM HYDROCHLORIDE
     Dosage: 10 MG, SINGLE
     Dates: start: 20161028, end: 20161028
  18. SOLANAX [Concomitant]
     Active Substance: ALPRAZOLAM
     Dosage: 0.4 MG, 3X/DAY
     Route: 048
  19. METHOTREXATE. [Suspect]
     Active Substance: METHOTREXATE
     Indication: LYMPHOMA
     Dosage: UNK
     Dates: start: 201609
  20. PROCARBAZINE [Concomitant]
     Active Substance: PROCARBAZINE
     Indication: LYMPHOMA
     Dosage: UNK
     Dates: start: 201609
  21. SODIUM VALPROATE [Concomitant]
     Active Substance: VALPROATE SODIUM
     Dosage: 400 MG, 1X/DAY
     Route: 048
     Dates: start: 20161102, end: 20161109
  22. RISPERIDONE. [Concomitant]
     Active Substance: RISPERIDONE
     Dosage: 2 MG, AS NEEDED
     Route: 048
     Dates: start: 20161107
  23. ANEXATE [Concomitant]
     Active Substance: FLUMAZENIL
     Dosage: 0.5 MG, SINGLE
     Dates: start: 20161028, end: 20161028
  24. HORIZON [Concomitant]
     Active Substance: DIAZEPAM
     Dosage: 10 MG, SINGLE
     Dates: start: 20161031, end: 20161031
  25. ZOLPIDEM TARTRATE. [Concomitant]
     Active Substance: ZOLPIDEM TARTRATE
     Dosage: 5 MG, 1X/DAY
     Route: 048
  26. ANEXATE [Concomitant]
     Active Substance: FLUMAZENIL
     Dosage: 0.5 MG, SINGLE
     Dates: start: 20161031, end: 20161031
  27. CYMBALTA [Concomitant]
     Active Substance: DULOXETINE HYDROCHLORIDE
     Dosage: 20 MG, 1X/DAY
     Route: 048

REACTIONS (5)
  - Depression [Recovering/Resolving]
  - Persecutory delusion [Recovering/Resolving]
  - Acute psychosis [Recovering/Resolving]
  - Restlessness [Recovering/Resolving]
  - Agitation [Recovering/Resolving]

NARRATIVE: CASE EVENT DATE: 2016
